FAERS Safety Report 5233095-6 (Version None)
Quarter: 2007Q1

REPORT INFORMATION
  Report Type: 
  Country: None (occurrence: None)
  Receive Date: 20061201
  Receipt Date: 20060919
  Transmission Date: 20070707
  Serious: No
  Sender: FDA-Public Use
  Company Number: 2006PV021546

PATIENT
  Age: 67 Year
  Sex: Female
  Weight: 97.5234 kg

DRUGS (6)
  1. BYETTA [Suspect]
     Indication: DIABETES MELLITUS NON-INSULIN-DEPENDENT
     Dosage: SEE IMAGE
     Route: 058
     Dates: start: 20060807, end: 20060907
  2. BYETTA [Suspect]
     Indication: DIABETES MELLITUS NON-INSULIN-DEPENDENT
     Dosage: SEE IMAGE
     Route: 058
     Dates: start: 20060908
  3. ACTOS /USA/ [Concomitant]
  4. METFORMIN HCL [Concomitant]
  5. GLYPIZIDE XL [Concomitant]
  6. INSULIN [Concomitant]

REACTIONS (4)
  - BLOOD GLUCOSE DECREASED [None]
  - BLOOD GLUCOSE INCREASED [None]
  - HYPOGLYCAEMIA UNAWARENESS [None]
  - NASOPHARYNGITIS [None]
